FAERS Safety Report 8355931 (Version 9)
Quarter: 2014Q3

REPORT INFORMATION
  Report Type: Spontaneous
  Country: US (occurrence: US)
  Receive Date: 20120126
  Receipt Date: 20140808
  Transmission Date: 20150326
  Serious: Yes (Death, Hospitalization)
  Sender: FDA-Public Use
  Company Number: US-JNJFOC-20120109949

PATIENT
  Age: 23 Year
  Sex: Male
  Weight: 102.97 kg

DRUGS (5)
  1. ANABOLIC STEROID [Suspect]
     Active Substance: UNSPECIFIED INGREDIENT
     Indication: PRODUCT USED FOR UNKNOWN INDICATION
     Route: 065
  2. PERCOCET [Suspect]
     Active Substance: ACETAMINOPHEN\OXYCODONE HYDROCHLORIDE
     Indication: PAIN
     Route: 065
  3. ANTACIDS [Concomitant]
     Active Substance: UNSPECIFIED INGREDIENT
     Route: 065
  4. TYLENOL EXTRA STRENGTH [Suspect]
     Active Substance: ACETAMINOPHEN
     Route: 048
  5. TYLENOL EXTRA STRENGTH [Suspect]
     Active Substance: ACETAMINOPHEN
     Indication: BACK PAIN
     Dosage: DAILY AS NEEDED
     Route: 048
     Dates: start: 20100601, end: 20100620

REACTIONS (16)
  - Neutropenia [Unknown]
  - Drug abuse [Unknown]
  - Brain oedema [Not Recovered/Not Resolved]
  - Hepatic encephalopathy [Not Recovered/Not Resolved]
  - Metabolic acidosis [Not Recovered/Not Resolved]
  - Toxicity to various agents [Fatal]
  - Pulmonary embolism [Not Recovered/Not Resolved]
  - Hepatitis B surface antibody positive [Unknown]
  - Renal failure [Not Recovered/Not Resolved]
  - Thrombocytopenia [Unknown]
  - Hypertension [Unknown]
  - Renal tubular necrosis [Not Recovered/Not Resolved]
  - Acute hepatic failure [Fatal]
  - Brain herniation [Fatal]
  - Coagulopathy [Not Recovered/Not Resolved]
  - Blood glucose increased [Recovered/Resolved]

NARRATIVE: CASE EVENT DATE: 201006
